FAERS Safety Report 10159586 (Version 1)
Quarter: 2014Q2

REPORT INFORMATION
  Report Type: Spontaneous
  Country: CA (occurrence: None)
  Receive Date: 20140506
  Receipt Date: 20140506
  Transmission Date: 20141212
  Serious: Yes (Congenital Anomaly)
  Sender: FDA-Public Use
  Company Number: CA14-337

PATIENT
  Age: 27 Year
  Sex: Female

DRUGS (2)
  1. DICLECTIN [Suspect]
     Indication: PROPHYLAXIS OF NAUSEA AND VOMITING
     Dosage: 1-5 TABLETS
     Route: 048
  2. RANITIDINE [Concomitant]

REACTIONS (8)
  - Exomphalos [None]
  - Cardiac malposition [None]
  - Congenital spinal cord anomaly [None]
  - Prescribed overdose [None]
  - Amniotic band syndrome [None]
  - Exposure during pregnancy [None]
  - Uterine dilation and curettage [None]
  - Foetal malformation [None]
